FAERS Safety Report 10976515 (Version 3)
Quarter: 2015Q3

REPORT INFORMATION
  Report Type: Report from Study
  Country: US (occurrence: US)
  Receive Date: 20150401
  Receipt Date: 20150817
  Transmission Date: 20151125
  Serious: Yes (Death, Other)
  Sender: FDA-Public Use
  Company Number: US-GILEAD-2015-0145895

PATIENT
  Age: 52 Year
  Sex: Male

DRUGS (3)
  1. TYVASO [Concomitant]
     Active Substance: TREPROSTINIL
  2. AMBRISENTAN [Suspect]
     Active Substance: AMBRISENTAN
     Indication: PULMONARY HYPERTENSION
     Dosage: 10 MG, QD
     Route: 065
     Dates: start: 20130507
  3. AMBRISENTAN [Suspect]
     Active Substance: AMBRISENTAN
     Indication: HEPATITIS

REACTIONS (2)
  - Chronic hepatic failure [Fatal]
  - Right ventricular failure [Fatal]
